FAERS Safety Report 7256657-3 (Version None)
Quarter: 2011Q1

REPORT INFORMATION
  Report Type: 
  Country: None (occurrence: None)
  Receive Date: 20110129
  Receipt Date: 20100808
  Transmission Date: 20110831
  Serious: No
  Sender: FDA-Public Use
  Company Number: US-ABBOTT-10P-163-0663033-00

PATIENT
  Age: 45 Year
  Sex: Male

DRUGS (5)
  1. IMURAN [Concomitant]
     Indication: CROHN'S DISEASE
  2. CELEXA [Concomitant]
     Indication: DEPRESSION
  3. CRESTOR [Concomitant]
     Indication: BLOOD CHOLESTEROL
  4. HUMIRA [Suspect]
     Indication: CROHN'S DISEASE
     Dosage: LOADING DOSE
     Dates: start: 20100806
  5. ASACOL [Concomitant]
     Indication: CROHN'S DISEASE

REACTIONS (1)
  - RASH MACULAR [None]
